FAERS Safety Report 5920253-8 (Version None)
Quarter: 2008Q4

REPORT INFORMATION
  Report Type: 
  Country: None (occurrence: None)
  Receive Date: 20081016
  Receipt Date: 20081015
  Transmission Date: 20090506
  Serious: Yes (Hospitalization, Other)
  Sender: FDA-Public Use
  Company Number: GB-BRISTOL-MYERS SQUIBB COMPANY-14269559

PATIENT
  Age: 80 Year
  Sex: Female

DRUGS (8)
  1. PRAVASTATIN SODIUM [Interacting]
     Indication: HYPERCHOLESTEROLAEMIA
     Dosage: STRENGTH 10MG
     Route: 048
  2. ATENOLOL [Suspect]
     Indication: HYPERTENSION
  3. AMITRIPTYLINE HCL [Interacting]
     Indication: DEPRESSION
     Dosage: STRENGTH 10MG
     Route: 048
  4. ASPIRIN [Suspect]
  5. LEVOTHYROXINE SODIUM [Suspect]
     Indication: HYPOTHYROIDISM
  6. ARTHROTEC [Suspect]
     Indication: ARTHRITIS
  7. WARFARIN SODIUM [Concomitant]
  8. HYDROCORTISONE [Concomitant]
     Indication: COLITIS
     Route: 042

REACTIONS (18)
  - ABDOMINAL DISCOMFORT [None]
  - ANAEMIA [None]
  - ANOREXIA [None]
  - BLOOD ALBUMIN DECREASED [None]
  - BLOOD UREA INCREASED [None]
  - COLITIS [None]
  - DEHYDRATION [None]
  - DIARRHOEA [None]
  - DRUG INTERACTION [None]
  - DRUG LEVEL INCREASED [None]
  - DRUG TOXICITY [None]
  - FIBROSIS [None]
  - LARGE INTESTINAL ULCER [None]
  - PLATELET COUNT INCREASED [None]
  - PSEUDOPOLYPOSIS [None]
  - PULMONARY EMBOLISM [None]
  - SCAR [None]
  - WEIGHT DECREASED [None]
